FAERS Safety Report 4303005-4 (Version None)
Quarter: 2004Q1

REPORT INFORMATION
  Report Type: 
  Country: None (occurrence: None)
  Receive Date: 20040224
  Receipt Date: 20040211
  Transmission Date: 20041129
  Serious: Yes (Congenital Anomaly)
  Sender: FDA-Public Use
  Company Number: GB-GLAXOSMITHKLINE-B0323117A

PATIENT
  Age: 27 Year
  Sex: Female

DRUGS (2)
  1. LAMIVUDINE + ZIDOVUDINE [Suspect]
     Dosage: 200MG PER DAY
     Route: 048
     Dates: start: 20010813
  2. NEVIRAPINE [Concomitant]
     Dosage: 400MG PER DAY
     Route: 048
     Dates: start: 20010813

REACTIONS (4)
  - COMPLICATIONS OF MATERNAL EXPOSURE TO THERAPEUTIC DRUGS [None]
  - MATERNAL DRUGS AFFECTING FOETUS [None]
  - PREGNANCY [None]
  - STILLBIRTH [None]
